FAERS Safety Report 8953999 (Version 1)
Quarter: 2012Q4

REPORT INFORMATION
  Report Type: 
  Country: AU (occurrence: AU)
  Receive Date: 20121206
  Receipt Date: 20121206
  Transmission Date: 20130627
  Serious: Yes (Other)
  Sender: FDA-Public Use
  Company Number: AU-WATSON-2012-21212

PATIENT
  Age: 10 Month
  Sex: Male

DRUGS (1)
  1. PROPRANOLOL (WATSON LABORATORIES) [Suspect]
     Indication: HAEMANGIOMA CONGENITAL
     Dosage: 2 mg/kg, daily
     Route: 065

REACTIONS (3)
  - Wheezing [Recovered/Resolved]
  - Cough [Recovered/Resolved]
  - Off label use [Recovered/Resolved]
